FAERS Safety Report 5251332-9 (Version None)
Quarter: 2007Q1

REPORT INFORMATION
  Report Type: 
  Country: None (occurrence: None)
  Receive Date: 20070228
  Receipt Date: 20070219
  Transmission Date: 20070707
  Serious: Yes (Life-Threatening, Hospitalization, Other)
  Sender: FDA-Public Use
  Company Number: HQWYE182431AUG06

PATIENT
  Sex: Male
  Weight: 70 kg

DRUGS (9)
  1. MYLOTARG [Suspect]
     Indication: ACUTE MYELOID LEUKAEMIA RECURRENT
     Route: 041
     Dates: start: 20060421, end: 20060421
  2. MYLOTARG [Suspect]
     Route: 041
     Dates: start: 20060509, end: 20060509
  3. MAXIPIME [Concomitant]
     Route: 041
     Dates: start: 20060420, end: 20060501
  4. AMIKACIN SULFATE [Concomitant]
     Route: 041
     Dates: start: 20060430, end: 20060512
  5. TIENAM [Concomitant]
     Route: 041
     Dates: start: 20060513, end: 20060515
  6. CIPROFLOXACIN [Concomitant]
     Route: 041
     Dates: start: 20060516, end: 20060522
  7. OMEPRAL [Concomitant]
     Route: 042
     Dates: start: 20060421, end: 20060422
  8. MEROPENEM [Concomitant]
     Route: 041
     Dates: start: 20060502, end: 20060512
  9. MEROPENEM [Concomitant]
     Route: 041
     Dates: start: 20060606

REACTIONS (14)
  - ANAEMIA [None]
  - ASCITES [None]
  - BLOOD ALKALINE PHOSPHATASE INCREASED [None]
  - BLOOD BILIRUBIN INCREASED [None]
  - GAMMA-GLUTAMYLTRANSFERASE INCREASED [None]
  - HEPATOMEGALY [None]
  - LEUCINE AMINOPEPTIDASE INCREASED [None]
  - NEUTROPHIL COUNT DECREASED [None]
  - PLATELET COUNT DECREASED [None]
  - PLEURAL EFFUSION [None]
  - PNEUMONIA [None]
  - RESPIRATORY FAILURE [None]
  - SEPSIS [None]
  - SEPTIC SHOCK [None]
